FAERS Safety Report 20911835 (Version 1)
Quarter: 2022Q2

REPORT INFORMATION
  Report Type: Spontaneous
  Country: FR (occurrence: FR)
  Receive Date: 20220603
  Receipt Date: 20220603
  Transmission Date: 20220721
  Serious: Yes (Other)
  Sender: FDA-Public Use
  Company Number: FR-SUN PHARMACEUTICAL INDUSTRIES LTD-2022RR-339620

PATIENT
  Age: 98 Year
  Sex: Female

DRUGS (2)
  1. QUETIAPINE [Suspect]
     Active Substance: QUETIAPINE
     Indication: Product administration error
     Dosage: ()IN TOTAL
     Route: 048
     Dates: start: 20220421
  2. OXAZEPAM [Suspect]
     Active Substance: OXAZEPAM
     Indication: Product administration error
     Dosage: ()IN TOTAL
     Route: 048
     Dates: start: 20220421

REACTIONS (2)
  - Somnolence [Recovered/Resolved]
  - Product dispensing error [Recovered/Resolved]

NARRATIVE: CASE EVENT DATE: 20220421
